FAERS Safety Report 18080422 (Version 1)
Quarter: 2020Q3

REPORT INFORMATION
  Report Type: Spontaneous
  Country: IT (occurrence: IT)
  Receive Date: 20200728
  Receipt Date: 20200728
  Transmission Date: 20201103
  Serious: Yes (Hospitalization)
  Sender: FDA-Public Use
  Company Number: IT-SA-2020SA191600

PATIENT

DRUGS (3)
  1. CETUXIMAB. [Concomitant]
     Active Substance: CETUXIMAB
     Dosage: UNK
  2. OXALIPLATIN. [Suspect]
     Active Substance: OXALIPLATIN
     Indication: NEOPLASM MALIGNANT
     Dosage: 1 DF, QCY
     Route: 042
     Dates: start: 20170927, end: 20170927
  3. OXALIPLATIN. [Suspect]
     Active Substance: OXALIPLATIN
     Dosage: 1 DF, QCY
     Route: 042
     Dates: start: 20200608, end: 20200608

REACTIONS (4)
  - Haematuria [Recovering/Resolving]
  - Dyspnoea [Recovering/Resolving]
  - Flushing [Recovering/Resolving]
  - Pruritus [Recovering/Resolving]

NARRATIVE: CASE EVENT DATE: 20200608
